FAERS Safety Report 6018000-7 (Version None)
Quarter: 2008Q4

REPORT INFORMATION
  Report Type: 
  Country: None (occurrence: None)
  Receive Date: 20081223
  Receipt Date: 20081219
  Transmission Date: 20090506
  Serious: Yes (Life-Threatening, Hospitalization)
  Sender: FDA-Public Use
  Company Number: B0542199A

PATIENT
  Age: 73 Year
  Sex: Male

DRUGS (4)
  1. AUGMENTIN '125' [Suspect]
     Indication: SIGMOIDITIS
     Dosage: 1G THREE TIMES PER DAY
     Route: 048
     Dates: start: 20080825, end: 20080905
  2. PREVISCAN [Suspect]
     Route: 048
     Dates: end: 20080925
  3. CORDARONE [Suspect]
     Route: 048
     Dates: end: 20080929
  4. ATACAND [Concomitant]
     Route: 048
     Dates: end: 20080929

REACTIONS (6)
  - ABDOMINAL PAIN [None]
  - CHOLANGITIS ACUTE [None]
  - HEPATITIS CHOLESTATIC [None]
  - HEPATOCELLULAR INJURY [None]
  - JAUNDICE [None]
  - RENAL FAILURE [None]
